FAERS Safety Report 10051761 (Version 3)
Quarter: 2014Q2

REPORT INFORMATION
  Report Type: Spontaneous
  Country: US (occurrence: US)
  Receive Date: 20140402
  Receipt Date: 20140430
  Transmission Date: 20141212
  Serious: Yes (Hospitalization, Other)
  Sender: FDA-Public Use
  Company Number: US-AMGEN-USASP2014022667

PATIENT
  Age: 60 Year
  Sex: Female
  Weight: 108.84 kg

DRUGS (6)
  1. EPOGEN [Suspect]
     Indication: RENAL FAILURE CHRONIC
     Dosage: 30000 UNIT, 3 TIMES/WK
     Route: 058
     Dates: start: 20100901
  2. SENSIPAR [Concomitant]
     Dosage: 30 MG, QPM
     Route: 048
     Dates: start: 20111012
  3. ROCALTROL [Concomitant]
     Indication: HYPERPARATHYROIDISM SECONDARY
     Dosage: 1 MUG, QHS
     Route: 048
     Dates: start: 20130717
  4. RENVELA [Concomitant]
     Indication: HYPERPHOSPHATAEMIA
     Dosage: 800 MG, TID
     Route: 048
     Dates: start: 20120107
  5. PRAVACHOL [Concomitant]
     Indication: HYPERLIPIDAEMIA
     Dosage: 20 MG, QD
     Route: 048
     Dates: start: 20120712
  6. K TAB [Concomitant]
     Indication: HYPOKALAEMIA
     Dosage: 20 MEQ, QD
     Route: 048
     Dates: start: 20100921

REACTIONS (5)
  - Haemoglobin decreased [Not Recovered/Not Resolved]
  - Fatigue [Unknown]
  - Dyspnoea [Unknown]
  - Dyspnoea exertional [Unknown]
  - Dizziness [Unknown]
